FAERS Safety Report 13826294 (Version 1)
Quarter: 2017Q3

REPORT INFORMATION
  Report Type: Spontaneous
  Country: US (occurrence: US)
  Receive Date: 20170802
  Receipt Date: 20170802
  Transmission Date: 20171127
  Serious: No
  Sender: FDA-Public Use
  Company Number: US-BAYER-2017-147725

PATIENT
  Sex: Female
  Weight: 104 kg

DRUGS (1)
  1. ALEVE [Suspect]
     Active Substance: NAPROXEN SODIUM
     Route: 048

REACTIONS (4)
  - Abdominal discomfort [Recovered/Resolved]
  - Malaise [Recovered/Resolved]
  - Device malfunction [None]
  - Device ineffective [Unknown]

NARRATIVE: CASE EVENT DATE: 20170801
